FAERS Safety Report 16773609 (Version 1)
Quarter: 2019Q3

REPORT INFORMATION
  Report Type: Spontaneous
  Country: US (occurrence: US)
  Receive Date: 20190904
  Receipt Date: 20190904
  Transmission Date: 20191005
  Serious: No
  Sender: FDA-Public Use
  Company Number: US-009507513-1908USA013176

PATIENT

DRUGS (2)
  1. CUBICIN [Suspect]
     Active Substance: DAPTOMYCIN
     Dosage: 10 MG/KG-1 EVERY 24 H
  2. CUBICIN [Suspect]
     Active Substance: DAPTOMYCIN
     Dosage: 10 MILLIGRAM/KILOGRAM, QD

REACTIONS (1)
  - Product use in unapproved indication [Unknown]
